FAERS Safety Report 23500601 (Version 1)
Quarter: 2024Q1

REPORT INFORMATION
  Report Type: Report from Study
  Country: US (occurrence: US)
  Receive Date: 20240208
  Receipt Date: 20240208
  Transmission Date: 20240410
  Serious: Yes (Hospitalization, Other)
  Sender: FDA-Public Use
  Company Number: US-ABBVIE-5623127

PATIENT
  Age: 46 Year
  Sex: Female

DRUGS (1)
  1. RINVOQ [Suspect]
     Active Substance: UPADACITINIB
     Indication: Crohn^s disease
     Route: 048
     Dates: start: 20220131

REACTIONS (5)
  - Female genital operation [Unknown]
  - COVID-19 [Recovering/Resolving]
  - Hernia [Unknown]
  - Intestinal resection [Unknown]
  - Oral mucosal blistering [Recovered/Resolved with Sequelae]

NARRATIVE: CASE EVENT DATE: 20231202
